FAERS Safety Report 11287560 (Version 2)
Quarter: 2015Q3

REPORT INFORMATION
  Report Type: Report from Study
  Country: KR (occurrence: KR)
  Receive Date: 20150721
  Receipt Date: 20150728
  Transmission Date: 20151125
  Serious: Yes (Death, Hospitalization)
  Sender: FDA-Public Use
  Company Number: KR-SA-2015SA053810

PATIENT
  Age: 7 Year
  Sex: Female
  Weight: 22 kg

DRUGS (111)
  1. CLOFARABINE [Suspect]
     Active Substance: CLOFARABINE
     Indication: ACUTE LYMPHOCYTIC LEUKAEMIA
     Dosage: DOSE: 40 MG/M2= 33 MG D1-D2, 26 MG D3
     Route: 041
     Dates: start: 20150619, end: 20150620
  2. ETOPOSIDE. [Suspect]
     Active Substance: ETOPOSIDE
     Indication: ACUTE LYMPHOCYTIC LEUKAEMIA
     Route: 041
     Dates: start: 20150621, end: 20150621
  3. LASIX [Concomitant]
     Active Substance: FUROSEMIDE
     Indication: DIURETIC THERAPY
     Dosage: IVH
     Dates: start: 20150423, end: 20150423
  4. LASIX [Concomitant]
     Active Substance: FUROSEMIDE
     Indication: DIURETIC THERAPY
     Dates: start: 20150710, end: 20150710
  5. BISOLVON [Concomitant]
     Active Substance: BROMHEXINE HYDROCHLORIDE
     Indication: PRODUCTIVE COUGH
     Route: 048
     Dates: start: 20150422
  6. COUGH AND COLD PREPARATIONS [Concomitant]
     Active Substance: UNSPECIFIED INGREDIENT
     Indication: PRODUCTIVE COUGH
     Route: 048
     Dates: start: 20150414, end: 20150422
  7. SODIUM BICARBONATE. [Concomitant]
     Active Substance: SODIUM BICARBONATE
     Dosage: IVF
     Dates: start: 20150625
  8. SODIUM BICARBONATE. [Concomitant]
     Active Substance: SODIUM BICARBONATE
     Dosage: IVF
     Dates: start: 20150626, end: 20150626
  9. PHOSTEN [Concomitant]
     Dosage: IVF
     Dates: start: 20150704, end: 20150714
  10. KYNEX [Concomitant]
     Active Substance: SULFAMETHOXYPYRIDAZINE
     Dosage: IVF
     Dates: start: 20150703, end: 20150704
  11. LANSTON [Concomitant]
     Active Substance: LANSOPRAZOLE
     Route: 048
     Dates: start: 20150630, end: 20150713
  12. CLOFARABINE [Suspect]
     Active Substance: CLOFARABINE
     Indication: ACUTE LYMPHOCYTIC LEUKAEMIA
     Dosage: DOSE: 32 MG D1-D3, 24 MG D4
     Route: 065
     Dates: start: 20150513, end: 20150516
  13. CYCLOPHOSPHAMIDE. [Suspect]
     Active Substance: CYCLOPHOSPHAMIDE
     Indication: ACUTE LYMPHOCYTIC LEUKAEMIA
     Dosage: DOSE: 352 MG D1-D3, 264 MG D4
     Route: 065
     Dates: start: 20150513, end: 20150516
  14. TAPOCIN [Concomitant]
     Indication: ANTIBIOTIC THERAPY
     Dosage: IVH
     Dates: start: 20150410, end: 20150412
  15. TAPOCIN [Concomitant]
     Indication: ANTIBIOTIC THERAPY
     Dosage: IVH
     Dates: start: 20150420, end: 20150421
  16. NEUTROGIN [Concomitant]
     Active Substance: LENOGRASTIM
     Indication: COLONY STIMULATING FACTOR PROPHYLAXIS
     Dates: start: 20150630, end: 20150714
  17. VITAMIN K [Concomitant]
     Active Substance: PHYTONADIONE
     Indication: PEPTIC ULCER
     Dosage: IVF
     Dates: start: 20150630, end: 20150713
  18. DEXAMETHASONE. [Concomitant]
     Active Substance: DEXAMETHASONE
     Indication: ANTIEMETIC SUPPORTIVE CARE
     Dosage: IVH
     Dates: start: 20150702, end: 20150714
  19. RHINATHIOL [Concomitant]
     Indication: PRODUCTIVE COUGH
     Route: 048
     Dates: start: 20150410, end: 20150411
  20. LASIX [Concomitant]
     Active Substance: FUROSEMIDE
     Indication: DIURETIC THERAPY
     Dates: start: 20150708, end: 20150712
  21. CIDOFOVIR. [Concomitant]
     Active Substance: CIDOFOVIR
     Route: 042
     Dates: start: 20150424, end: 20150424
  22. ENDOXAN [Concomitant]
     Active Substance: CYCLOPHOSPHAMIDE
     Indication: NEOPLASM MALIGNANT
     Dosage: IVF
     Dates: start: 20150621, end: 20150621
  23. SMECTA [Concomitant]
     Active Substance: MONTMORILLONITE
     Indication: GASTROINTESTINAL DISORDER
     Route: 048
     Dates: start: 20150620, end: 20150626
  24. SODIUM BICARBONATE. [Concomitant]
     Active Substance: SODIUM BICARBONATE
     Dosage: IVF
     Dates: start: 20150627, end: 20150628
  25. COTRIM [Concomitant]
     Active Substance: SULFAMETHOXAZOLE\TRIMETHOPRIM
     Dosage: IVF
     Dates: start: 20150626
  26. ALBUMIN [Concomitant]
     Active Substance: ALBUMIN (HUMAN)
     Dosage: IVF
     Dates: start: 20150626, end: 20150708
  27. CURAN [Concomitant]
     Dates: start: 20150630, end: 20150714
  28. ETOPOSIDE. [Suspect]
     Active Substance: ETOPOSIDE
     Indication: ACUTE LYMPHOCYTIC LEUKAEMIA
     Route: 065
     Dates: start: 20150402, end: 20150406
  29. ETOPOSIDE. [Suspect]
     Active Substance: ETOPOSIDE
     Indication: ACUTE LYMPHOCYTIC LEUKAEMIA
     Dosage: DOSE: 80 MG D1-D3, 60 MG D4
     Route: 065
     Dates: start: 20150513, end: 20150516
  30. ETOPOSIDE. [Suspect]
     Active Substance: ETOPOSIDE
     Indication: ACUTE LYMPHOCYTIC LEUKAEMIA
     Dosage: DOSE: 100 MG/M2= 82 MG D1-D2, 65 MG D3
     Route: 041
     Dates: start: 20150619, end: 20150620
  31. CYCLOPHOSPHAMIDE. [Suspect]
     Active Substance: CYCLOPHOSPHAMIDE
     Indication: ACUTE LYMPHOCYTIC LEUKAEMIA
     Dosage: DOSE: 440 MG/M2= 360 MG D1-D2, 290 MG D3
     Route: 041
     Dates: start: 20150619, end: 20150620
  32. MORPHINE SULFATE. [Concomitant]
     Active Substance: MORPHINE SULFATE
     Dates: start: 20150702, end: 20150708
  33. SOLONDO [Concomitant]
     Active Substance: PREDNISOLONE
     Indication: ACUTE LYMPHOCYTIC LEUKAEMIA
     Route: 048
     Dates: start: 20150410, end: 20150412
  34. TAGAMET [Concomitant]
     Active Substance: CIMETIDINE
     Indication: ULCER
     Dosage: IVH
     Dates: start: 20150410
  35. CANCIDAS [Concomitant]
     Active Substance: CASPOFUNGIN ACETATE
     Indication: ANTI-INFECTIVE THERAPY
     Dosage: IVF
     Dates: start: 20150619
  36. PENIRAMIN [Concomitant]
     Indication: ANTIALLERGIC THERAPY
     Dosage: IVF
     Dates: start: 20150414, end: 20150422
  37. LASIX [Concomitant]
     Active Substance: FUROSEMIDE
     Indication: DIURETIC THERAPY
     Dosage: IVH
     Dates: start: 20150421, end: 20150421
  38. CEFPIRAN [Concomitant]
     Indication: ANTIBIOTIC THERAPY
     Dosage: IVF
     Route: 048
     Dates: start: 20150417
  39. SEPTRIN [Concomitant]
     Active Substance: SULFAMETHOXAZOLE\TRIMETHOPRIM
     Indication: ANTIBIOTIC THERAPY
     Dosage: 0.75 T
     Route: 048
     Dates: start: 20150422, end: 20150423
  40. COTRIM [Concomitant]
     Active Substance: SULFAMETHOXAZOLE\TRIMETHOPRIM
     Dosage: IVF
     Dates: start: 20150707, end: 20150707
  41. CURAN [Concomitant]
     Dosage: IVF
     Dates: start: 20150627, end: 20150628
  42. LANSTON [Concomitant]
     Active Substance: LANSOPRAZOLE
     Route: 048
     Dates: start: 20150629
  43. CYCLOPHOSPHAMIDE. [Suspect]
     Active Substance: CYCLOPHOSPHAMIDE
     Indication: ACUTE LYMPHOCYTIC LEUKAEMIA
     Route: 065
     Dates: start: 20150402, end: 20150406
  44. SOLONDO [Concomitant]
     Active Substance: PREDNISOLONE
     Indication: HORMONE REPLACEMENT THERAPY
     Route: 048
     Dates: start: 20150410, end: 20150412
  45. TAGAMET [Concomitant]
     Active Substance: CIMETIDINE
     Indication: ULCER
     Route: 048
     Dates: start: 20150619, end: 20150622
  46. LASIX [Concomitant]
     Active Substance: FUROSEMIDE
     Indication: DIURETIC THERAPY
     Dates: start: 20150703, end: 20150703
  47. PENIRAMIN [Concomitant]
     Indication: ANTIALLERGIC THERAPY
     Route: 048
     Dates: start: 20150422
  48. SMECTA [Concomitant]
     Active Substance: MONTMORILLONITE
     Indication: GASTROINTESTINAL DISORDER
     Route: 048
     Dates: start: 20150619
  49. SODIUM BICARBONATE. [Concomitant]
     Active Substance: SODIUM BICARBONATE
     Dates: start: 20150713, end: 20150714
  50. TOBRAMYCIN. [Concomitant]
     Active Substance: TOBRAMYCIN
     Dosage: QUO
     Dates: start: 20150628, end: 20150628
  51. MASI [Concomitant]
     Indication: SEIZURE
     Dosage: 10%, FM
     Dates: start: 20150629, end: 20150701
  52. MUCOSTEN [Concomitant]
     Dosage: IVF
     Dates: start: 20150705, end: 20150714
  53. CLOFARABINE [Suspect]
     Active Substance: CLOFARABINE
     Indication: ACUTE LYMPHOCYTIC LEUKAEMIA
     Route: 041
     Dates: start: 20150621, end: 20150621
  54. VENTOLIN [Concomitant]
     Active Substance: ALBUTEROL SULFATE
     Indication: PRODUCTIVE COUGH
     Dosage: 1 PACK TID DRN
     Dates: start: 20150630, end: 20150711
  55. SOLONDO [Concomitant]
     Active Substance: PREDNISOLONE
     Indication: HORMONE REPLACEMENT THERAPY
     Route: 048
     Dates: start: 20150413, end: 20150415
  56. SOLONDO [Concomitant]
     Active Substance: PREDNISOLONE
     Indication: ACUTE LYMPHOCYTIC LEUKAEMIA
     Route: 048
     Dates: start: 20150619, end: 20150620
  57. NYSTATIN. [Concomitant]
     Active Substance: NYSTATIN
     Indication: ANTI-INFECTIVE THERAPY
     Dosage: SUSPENSION
     Route: 048
     Dates: start: 20150410
  58. CANCIDAS [Concomitant]
     Active Substance: CASPOFUNGIN ACETATE
     Indication: ANTI-INFECTIVE THERAPY
     Dates: start: 20150630, end: 20150709
  59. PENIRAMIN [Concomitant]
     Indication: ANTIALLERGIC THERAPY
     Route: 048
     Dates: start: 20150619, end: 20150626
  60. KLARICID [Concomitant]
     Active Substance: CLARITHROMYCIN
     Indication: ANTI-INFECTIVE THERAPY
     Route: 048
     Dates: start: 20150421, end: 20150421
  61. KLARICID [Concomitant]
     Active Substance: CLARITHROMYCIN
     Indication: ANTI-INFECTIVE THERAPY
     Dosage: IVF
     Dates: start: 20150630, end: 20150709
  62. PENIRAMIN [Concomitant]
     Indication: ANTIALLERGIC THERAPY
     Dosage: IVF
     Dates: start: 20150619, end: 20150625
  63. ACETAMINOPHEN. [Concomitant]
     Active Substance: ACETAMINOPHEN
     Indication: ANALGESIC THERAPY
     Route: 048
     Dates: start: 20150418
  64. COUGH AND COLD PREPARATIONS [Concomitant]
     Active Substance: UNSPECIFIED INGREDIENT
     Indication: ANTITUSSIVE THERAPY
     Route: 048
     Dates: start: 20150414, end: 20150422
  65. MAGNESIUM [Concomitant]
     Active Substance: MAGNESIUM
     Indication: AMINO ACID LEVEL
     Dates: start: 20150704, end: 20150709
  66. ONSERAN [Concomitant]
     Indication: ANTIEMETIC SUPPORTIVE CARE
     Dosage: IVF
     Dates: start: 20150619, end: 20150621
  67. ENDOXAN [Concomitant]
     Active Substance: CYCLOPHOSPHAMIDE
     Indication: NEOPLASM MALIGNANT
     Dosage: IVF
     Dates: start: 20150619, end: 20150620
  68. PHOSTEN [Concomitant]
     Dates: start: 20150701, end: 20150703
  69. LOPERAMIDE [Concomitant]
     Active Substance: LOPERAMIDE
     Route: 048
     Dates: start: 20150626, end: 20150627
  70. MASI [Concomitant]
     Indication: SEIZURE
     Dates: start: 20150703, end: 20150706
  71. ULINASTATIN [Concomitant]
     Active Substance: ULINASTATIN
     Indication: CARDIOVASCULAR DISORDER
     Dates: start: 20150630, end: 20150714
  72. MEROPEN [Concomitant]
     Active Substance: MEROPENEM
     Indication: ANTIBIOTIC THERAPY
     Dosage: IVF
     Dates: start: 20150410, end: 20150414
  73. MAGNESIUM [Concomitant]
     Active Substance: MAGNESIUM
     Dosage: IVF
     Dates: start: 20150704, end: 20150709
  74. SOLONDO [Concomitant]
     Active Substance: PREDNISOLONE
     Indication: ACUTE LYMPHOCYTIC LEUKAEMIA
     Route: 048
     Dates: start: 20150413, end: 20150415
  75. SOLONDO [Concomitant]
     Active Substance: PREDNISOLONE
     Indication: HORMONE REPLACEMENT THERAPY
     Route: 048
     Dates: start: 20150619, end: 20150620
  76. CANCIDAS [Concomitant]
     Active Substance: CASPOFUNGIN ACETATE
     Indication: ANTI-INFECTIVE THERAPY
     Dates: start: 20150410
  77. PENIRAMIN [Concomitant]
     Indication: ANTIALLERGIC THERAPY
     Route: 048
     Dates: start: 20150410, end: 20150411
  78. LASIX [Concomitant]
     Active Substance: FUROSEMIDE
     Indication: DIURETIC THERAPY
     Dosage: IVH
     Dates: start: 20150410, end: 20150412
  79. CEFPIRAN [Concomitant]
     Indication: ANTIBIOTIC THERAPY
     Dosage: IVF
     Dates: start: 20150414, end: 20150417
  80. DIFLUCAN [Concomitant]
     Active Substance: FLUCONAZOLE
     Indication: ANTI-INFECTIVE THERAPY
     Route: 048
     Dates: start: 20150416, end: 20150418
  81. PENIRAMIN [Concomitant]
     Indication: ANTIALLERGIC THERAPY
     Dates: start: 20150630, end: 20150709
  82. ATIVAN [Concomitant]
     Active Substance: LORAZEPAM
     Indication: MENTAL DISORDER
     Dosage: IVF
     Dates: start: 20150619, end: 20150625
  83. PROBENECID. [Concomitant]
     Active Substance: PROBENECID
     Indication: GOUT
     Route: 048
     Dates: start: 20150620, end: 20150620
  84. ADELAVIN [Concomitant]
     Dosage: IVF
     Dates: start: 20150622
  85. PHOSTEN [Concomitant]
     Dosage: IVF
     Dates: start: 20150629, end: 20150703
  86. CLOFARABINE [Suspect]
     Active Substance: CLOFARABINE
     Indication: ACUTE LYMPHOCYTIC LEUKAEMIA
     Route: 065
     Dates: start: 20150402, end: 20150406
  87. CODEINE [Concomitant]
     Active Substance: CODEINE
     Route: 048
     Dates: start: 20150630, end: 20150710
  88. LASIX [Concomitant]
     Active Substance: FUROSEMIDE
     Indication: DIURETIC THERAPY
     Dosage: IVF
     Dates: start: 20150621, end: 20150626
  89. ATOCK [Concomitant]
     Route: 048
     Dates: start: 20150422
  90. PENIRAMIN [Concomitant]
     Indication: ANTIALLERGIC THERAPY
     Dosage: IVH
  91. LEVOTUSS [Concomitant]
     Active Substance: LEVODROPROPIZINE
     Indication: PRODUCTIVE COUGH
     Route: 048
     Dates: start: 20150422
  92. MEGACE [Concomitant]
     Active Substance: MEGESTROL ACETATE
     Dosage: SUSPENSION
     Route: 048
     Dates: start: 20150619, end: 20150626
  93. UROMITEXAN [Concomitant]
     Active Substance: MESNA
     Indication: TOXICITY TO VARIOUS AGENTS
     Dosage: IVF
     Dates: start: 20150619, end: 20150625
  94. SMECTA [Concomitant]
     Active Substance: MONTMORILLONITE
     Indication: GASTROINTESTINAL DISORDER
     Route: 048
     Dates: start: 20150626, end: 20150627
  95. SODIUM BICARBONATE. [Concomitant]
     Active Substance: SODIUM BICARBONATE
     Dosage: IVF
     Dates: start: 20150628, end: 20150628
  96. ALBUMIN [Concomitant]
     Active Substance: ALBUMIN (HUMAN)
     Dates: start: 20150703, end: 20150712
  97. KYNEX [Concomitant]
     Active Substance: SULFAMETHOXYPYRIDAZINE
     Dosage: 1 BOX,QD,DRO
     Dates: start: 20150627, end: 20150627
  98. FLUCONAZOLE. [Concomitant]
     Active Substance: FLUCONAZOLE
     Dosage: IVF
     Dates: start: 20150622, end: 20150625
  99. CYCLOPHOSPHAMIDE. [Suspect]
     Active Substance: CYCLOPHOSPHAMIDE
     Indication: ACUTE LYMPHOCYTIC LEUKAEMIA
     Route: 041
     Dates: start: 20150621, end: 20150621
  100. TAPOCIN [Concomitant]
     Indication: ANTIBIOTIC THERAPY
     Dates: start: 20150630, end: 20150713
  101. NEUTROGIN [Concomitant]
     Active Substance: LENOGRASTIM
     Indication: COLONY STIMULATING FACTOR PROPHYLAXIS
     Dosage: IVH
     Dates: start: 20150410
  102. URSA [Concomitant]
     Route: 048
     Dates: start: 20150705, end: 20150714
  103. PULMICORT TURBUHALER [Concomitant]
     Active Substance: BUDESONIDE
     Dosage: 0.2 PACK, DRN
     Dates: start: 20150630, end: 20150711
  104. MORPHINE SULFATE. [Concomitant]
     Active Substance: MORPHINE SULFATE
     Dosage: IVH
     Dates: start: 20150602
  105. PENIRAMIN [Concomitant]
     Indication: ANTIALLERGIC THERAPY
     Dates: start: 20150630, end: 20150709
  106. LASIX [Concomitant]
     Active Substance: FUROSEMIDE
     Indication: DIURETIC THERAPY
     Dates: start: 20150630, end: 20150713
  107. VARIDASE [Concomitant]
     Indication: ANTIINFLAMMATORY THERAPY
     Dosage: 0.6 T
     Route: 048
     Dates: start: 20150414, end: 20150422
  108. MAGNESIUM [Concomitant]
     Active Substance: MAGNESIUM
     Indication: AMINO ACID LEVEL
     Dosage: IVF
     Dates: start: 20150619
  109. MACPERAN [Concomitant]
     Indication: GASTROINTESTINAL DISORDER
     Dosage: IVF
     Dates: start: 20150619, end: 20150625
  110. ADELAVIN [Concomitant]
     Dates: start: 20150701, end: 20150714
  111. CURAN [Concomitant]
     Dosage: IVH
     Dates: start: 20150628

REACTIONS (8)
  - Pleural effusion [Fatal]
  - Parainfluenzae virus infection [Not Recovered/Not Resolved]
  - Pneumonia [Fatal]
  - Pancreatitis [Fatal]
  - BK virus infection [Not Recovered/Not Resolved]
  - Ascites [Fatal]
  - Mycoplasma infection [Not Recovered/Not Resolved]
  - Hepatitis [Not Recovered/Not Resolved]

NARRATIVE: CASE EVENT DATE: 20150423
